FAERS Safety Report 5692058-7 (Version None)
Quarter: 2008Q1

REPORT INFORMATION
  Report Type: 
  Country: None (occurrence: None)
  Receive Date: 20080331
  Receipt Date: 20080321
  Transmission Date: 20080703
  Serious: Yes (Life-Threatening, Hospitalization)
  Sender: FDA-Public Use
  Company Number: RENA-1000067

PATIENT
  Age: 57 Year
  Sex: Male

DRUGS (11)
  1. RENAGEL [Suspect]
     Indication: HYPERPHOSPHATAEMIA
     Dosage: ORAL
     Route: 048
     Dates: end: 20080211
  2. CINACALCET HYDROCHLORIDE (CINACALCET HYDROCHLORIDE) [Suspect]
     Indication: HYPERPARATHYROIDISM SECONDARY
     Dosage: ORAL
     Route: 048
     Dates: start: 20080211, end: 20080222
  3. SENNOSIDE (SENNOSIDE A+B CALCIUM) [Concomitant]
  4. ALLOPURINOL [Concomitant]
  5. LOSARTAN POTASSIUM [Concomitant]
  6. FUROSEMIDE [Concomitant]
  7. CALTAN (CALCIUM CARBONATE) [Concomitant]
  8. CALTAN (CALCIUM CARBONATE) [Concomitant]
  9. DARBEPOETIN ALFA (DARBEPOETIN ALFA) [Concomitant]
  10. DARBEPOETIN ALFA (DARBEPOETIN ALFA) [Concomitant]
  11. DARBEPOETIN ALFA (DARBEPOETIN ALFA) [Concomitant]

REACTIONS (8)
  - ABDOMINAL DISTENSION [None]
  - BLOOD PRESSURE DECREASED [None]
  - DIZZINESS [None]
  - DRUG INTERACTION [None]
  - DUODENAL ULCER [None]
  - GENERAL PHYSICAL HEALTH DETERIORATION [None]
  - HAEMATOCRIT DECREASED [None]
  - HAEMOGLOBIN DECREASED [None]
